FAERS Safety Report 5211489-2 (Version None)
Quarter: 2006Q4

REPORT INFORMATION
  Report Type: 
  Country: None (occurrence: None)
  Receive Date: 20061115
  Receipt Date: 20060801
  Transmission Date: 20070319
  Serious: No
  Sender: FDA-Public Use
  Company Number: 200614934BWH

PATIENT
  Age: 65 Year
  Sex: Female

DRUGS (7)
  1. NEXAVAR [Suspect]
     Indication: METASTATIC RENAL CELL CARCINOMA
     Dosage: 400 MG, BID, ORAL
     Route: 048
     Dates: start: 20060722, end: 20060730
  2. SINGULAIR [Concomitant]
  3. ZYRTEC [Concomitant]
  4. FLONASE [Concomitant]
  5. PULMICORT [Concomitant]
  6. PRILOSEC [Concomitant]
  7. REMERON [Concomitant]

REACTIONS (10)
  - BLISTER [None]
  - ERYTHEMA [None]
  - FACE OEDEMA [None]
  - FEELING HOT [None]
  - HEADACHE [None]
  - PAIN IN EXTREMITY [None]
  - PALMAR-PLANTAR ERYTHRODYSAESTHESIA SYNDROME [None]
  - PARAESTHESIA [None]
  - RASH [None]
  - SWELLING FACE [None]
